FAERS Safety Report 17967975 (Version 1)
Quarter: 2020Q3

REPORT INFORMATION
  Report Type: Spontaneous
  Country: US (occurrence: US)
  Receive Date: 20200701
  Receipt Date: 20200701
  Transmission Date: 20201103
  Serious: Yes (Other)
  Sender: FDA-Public Use
  Company Number: US-ELI_LILLY_AND_COMPANY-US202006009710

PATIENT
  Sex: Female

DRUGS (10)
  1. BASAGLAR [Suspect]
     Active Substance: INSULIN GLARGINE
     Indication: DIABETES MELLITUS
     Dosage: 90 U, DAILY
     Route: 058
     Dates: start: 2019
  2. SOLU?MEDROL [Suspect]
     Active Substance: METHYLPREDNISOLONE SODIUM SUCCINATE
     Indication: ARTHRITIS
     Dosage: UNK UNK, UNKNOWN
     Route: 042
  3. BASAGLAR [Suspect]
     Active Substance: INSULIN GLARGINE
     Dosage: 90 U, DAILY
     Route: 058
  4. BASAGLAR [Suspect]
     Active Substance: INSULIN GLARGINE
     Dosage: 90 U, DAILY
     Route: 058
  5. CORTISONE [Suspect]
     Active Substance: CORTISONE
     Indication: ARTHRITIS
     Dosage: UNK UNK, UNKNOWN
     Route: 065
  6. PREDNISONE. [Suspect]
     Active Substance: PREDNISONE
     Indication: ARTHRITIS
     Dosage: UNK UNK, UNKNOWN
  7. LIPITOR [Concomitant]
     Active Substance: ATORVASTATIN CALCIUM
     Indication: BLOOD CHOLESTEROL INCREASED
     Dosage: LOWEST DOSAGE
  8. LISINOPRIL. [Concomitant]
     Active Substance: LISINOPRIL
     Indication: HYPERTENSION
  9. GABAPENTIN. [Concomitant]
     Active Substance: GABAPENTIN
     Indication: NEUROPATHY PERIPHERAL
  10. BASAGLAR [Suspect]
     Active Substance: INSULIN GLARGINE
     Indication: DIABETES MELLITUS
     Dosage: 90 U, DAILY
     Route: 058
     Dates: start: 2019

REACTIONS (6)
  - Blood glucose increased [Recovering/Resolving]
  - Arthritis [Not Recovered/Not Resolved]
  - Dysstasia [Not Recovered/Not Resolved]
  - Memory impairment [Recovered/Resolved]
  - Sinusitis [Recovered/Resolved]
  - Gait disturbance [Not Recovered/Not Resolved]
